FAERS Safety Report 7581208-3 (Version None)
Quarter: 2011Q2

REPORT INFORMATION
  Report Type: 
  Country: None (occurrence: None)
  Receive Date: 20110629
  Receipt Date: 20110627
  Transmission Date: 20111010
  Serious: Yes (Hospitalization)
  Sender: FDA-Public Use
  Company Number: FR-PFIZER INC-2011023643

PATIENT
  Age: 58 Year
  Sex: Male
  Weight: 85.5 kg

DRUGS (1)
  1. AMLODIPINE [Suspect]
     Indication: HYPERTENSION
     Dosage: UNK
     Route: 048
     Dates: start: 20101130, end: 20101206

REACTIONS (3)
  - RASH [None]
  - EOSINOPHILIA [None]
  - DERMATITIS EXFOLIATIVE [None]
